FAERS Safety Report 9459089 (Version 4)
Quarter: 2013Q3

REPORT INFORMATION
  Report Type: Report from Study
  Country: JP (occurrence: JP)
  Receive Date: 20130814
  Receipt Date: 20130902
  Transmission Date: 20140515
  Serious: Yes (Hospitalization)
  Sender: FDA-Public Use
  Company Number: JP-009507513-1308JPN003915

PATIENT
  Age: 37 Year
  Sex: Male
  Weight: 53 kg

DRUGS (13)
  1. ASENAPINE MALEATE-SCHIZOPHRENIA [Suspect]
     Indication: SCHIZOPHRENIA
     Dosage: DAILY DOSE UNKNOWN; BLINDED THERAPY: ASENAPINE 5MG, 10 MG OR PLACEBO
     Route: 060
     Dates: start: 20120830, end: 20120913
  2. ASENAPINE MALEATE-SCHIZOPHRENIA [Suspect]
     Dosage: DAILY DOSE UNKNOWN; BLINDED THERAPY: ASENAPINE 5 MG OR 10 MG
     Route: 060
     Dates: start: 20120913, end: 20121011
  3. ASENAPINE MALEATE-SCHIZOPHRENIA [Suspect]
     Dosage: 5 MG, BID; OPEN-LABEL
     Route: 060
     Dates: start: 20121011, end: 20130802
  4. BROTIZOLAM [Concomitant]
     Indication: INSOMNIA
     Dosage: 0.25 MG, QD
     Route: 048
     Dates: start: 20130510
  5. MYSLEE [Concomitant]
     Indication: INSOMNIA
     Dosage: 5 MG, QD
     Route: 048
     Dates: start: 20120307
  6. U PAN [Concomitant]
     Indication: IRRITABILITY
     Dosage: 0.5 MG, PRN
     Route: 048
     Dates: start: 20120719
  7. AKINETON TABLETS [Concomitant]
     Indication: EXTRAPYRAMIDAL DISORDER
     Dosage: 1 MG, QD
     Route: 048
     Dates: start: 20120723
  8. LOXOPROFEN [Concomitant]
     Indication: CONTUSION
     Dosage: 60 MG, PRN
     Route: 048
     Dates: start: 20120313
  9. MUCOSTA [Concomitant]
     Indication: GASTRITIS PROPHYLAXIS
     Dosage: 100 MG, PRN
     Route: 048
     Dates: start: 20121220
  10. VITAMEDIN CAPSULES [Concomitant]
     Indication: DECREASED APPETITE
     Dosage: 1 DF, QD
     Route: 048
     Dates: start: 20130621
  11. CINAL [Concomitant]
     Indication: DECREASED APPETITE
     Dosage: 1 DF, QD
     Route: 048
     Dates: start: 20130621
  12. LOXONIN [Concomitant]
     Indication: CONTUSION
     Dosage: 1 DF, PRN, FOR-TAP
     Route: 062
     Dates: start: 20120816
  13. SLOW-K [Concomitant]

REACTIONS (1)
  - Suicidal ideation [Recovering/Resolving]
